FAERS Safety Report 11031968 (Version 1)
Quarter: 2015Q2

REPORT INFORMATION
  Report Type: Spontaneous
  Country: US (occurrence: None)
  Receive Date: 20150414
  Receipt Date: 20150414
  Transmission Date: 20150821
  Serious: Yes (Hospitalization)
  Sender: FDA-Public Use
  Company Number: VIT-2015-00714

PATIENT
  Age: 49 Year
  Sex: Male
  Weight: 93.5 kg

DRUGS (2)
  1. VELPHORO [Suspect]
     Active Substance: FERRIC OXYHYDROXIDE
     Indication: HYPERPHOSPHATAEMIA
     Dosage: 1 IN 1 TOTAL
     Route: 048
     Dates: start: 20150207
  2. CALCIUM ACETATE (CALCIUM ACETATE) [Concomitant]

REACTIONS (4)
  - Wrong technique in drug usage process [None]
  - Seroma [None]
  - Wrong drug administered [None]
  - Intestinal obstruction [None]

NARRATIVE: CASE EVENT DATE: 20150207
